FAERS Safety Report 10133705 (Version 2)
Quarter: 2014Q2

REPORT INFORMATION
  Report Type: Spontaneous
  Country: GB (occurrence: GB)
  Receive Date: 20140428
  Receipt Date: 20140520
  Transmission Date: 20141212
  Serious: Yes (Disabling, Other)
  Sender: FDA-Public Use
  Company Number: GB-ACTAVIS-2014-08194

PATIENT
  Sex: Female

DRUGS (1)
  1. GABAPENTIN (UNKNOWN) [Suspect]
     Indication: SPINAL PAIN
     Dosage: 300 MG, DAILY
     Route: 048
     Dates: start: 20130710, end: 20130711

REACTIONS (8)
  - Personality change [Recovered/Resolved with Sequelae]
  - Hypotonia [Recovered/Resolved with Sequelae]
  - Toxicity to various agents [Unknown]
  - Paralysis [Unknown]
  - Pain [Unknown]
  - Loss of consciousness [Unknown]
  - Altered state of consciousness [Unknown]
  - Malaise [Unknown]
